FAERS Safety Report 9119003 (Version 2)
Quarter: 2013Q2

REPORT INFORMATION
  Report Type: Spontaneous
  Country: US (occurrence: US)
  Receive Date: 20130226
  Receipt Date: 20130416
  Transmission Date: 20140414
  Serious: No
  Sender: FDA-Public Use
  Company Number: US-PFIZER INC-2013065532

PATIENT
  Age: 89 Year
  Sex: Female

DRUGS (1)
  1. NITROSTAT [Suspect]
     Indication: ANGINA PECTORIS
     Dosage: 0.4 MG, AS NEEDED
     Route: 060

REACTIONS (2)
  - Drug effect delayed [Unknown]
  - Product taste abnormal [Unknown]
